FAERS Safety Report 5587913-2 (Version None)
Quarter: 2008Q1

REPORT INFORMATION
  Report Type: 
  Country: None (occurrence: None)
  Receive Date: 20080111
  Receipt Date: 20080107
  Transmission Date: 20080703
  Serious: Yes (Other)
  Sender: FDA-Public Use
  Company Number: US-BAYER-US-2007-039704

PATIENT
  Age: 64 Year
  Sex: Female
  Weight: 65 kg

DRUGS (1)
  1. MAGNEVIST [Suspect]
     Indication: NUCLEAR MAGNETIC RESONANCE IMAGING BRAIN
     Dosage: UNIT DOSE: 13 ML
     Route: 042
     Dates: start: 20071002, end: 20071002

REACTIONS (15)
  - DIPLOPIA [None]
  - EYE PAIN [None]
  - FATIGUE [None]
  - GINGIVAL PAIN [None]
  - HEADACHE [None]
  - HYPOAESTHESIA [None]
  - HYPOAESTHESIA FACIAL [None]
  - MUSCULOSKELETAL STIFFNESS [None]
  - NYSTAGMUS [None]
  - PARAESTHESIA [None]
  - PROCEDURAL DIZZINESS [None]
  - SALIVARY HYPERSECRETION [None]
  - SOMNOLENCE [None]
  - THIRST [None]
  - TOOTHACHE [None]
